FAERS Safety Report 9502424 (Version 2)
Quarter: 2013Q3

REPORT INFORMATION
  Report Type: Spontaneous
  Country: US (occurrence: US)
  Receive Date: 20130906
  Receipt Date: 20130906
  Transmission Date: 20140515
  Serious: Yes (Other)
  Sender: FDA-Public Use
  Company Number: US-RANBAXY-2010US-37975

PATIENT
  Age: 32 Year
  Sex: Male

DRUGS (3)
  1. SERTRALINE [Suspect]
     Indication: PANIC DISORDER WITH AGORAPHOBIA
     Dosage: 9.375 MG/D
     Route: 065
  2. SERTRALINE [Suspect]
     Indication: PANIC DISORDER WITH AGORAPHOBIA
     Dosage: 6.25MG/D
     Route: 065
  3. DIAZEPAM [Suspect]
     Indication: PHOBIA
     Dosage: 5 MG, PRN
     Route: 065

REACTIONS (4)
  - Ejaculation delayed [Unknown]
  - Hyperhidrosis [Unknown]
  - Abnormal dreams [Unknown]
  - Activation syndrome [Recovered/Resolved]
